FAERS Safety Report 5333949-6 (Version None)
Quarter: 2007Q2

REPORT INFORMATION
  Report Type: 
  Country: None (occurrence: None)
  Receive Date: 20070524
  Receipt Date: 20070514
  Transmission Date: 20071010
  Serious: Yes (Other)
  Sender: FDA-Public Use
  Company Number: FR-PFIZER INC-2006132431

PATIENT
  Sex: Female

DRUGS (2)
  1. TAHOR [Suspect]
  2. BENFLUOREX [Suspect]

REACTIONS (1)
  - CARDIAC VALVE DISEASE [None]
